FAERS Safety Report 20526090 (Version 2)
Quarter: 2022Q1

REPORT INFORMATION
  Report Type: Report from Study
  Country: US (occurrence: US)
  Receive Date: 20220228
  Receipt Date: 20220307
  Transmission Date: 20220423
  Serious: Yes (Hospitalization, Other)
  Sender: FDA-Public Use
  Company Number: US-BRISTOL-MYERS SQUIBB COMPANY-BMS-2022-027146

PATIENT
  Age: 66 Year
  Sex: Female
  Weight: 81.6 kg

DRUGS (8)
  1. NIVOLUMAB [Suspect]
     Active Substance: NIVOLUMAB
     Indication: Diffuse large B-cell lymphoma
     Dosage: 3 MILLIGRAM/KILOGRAM, Q3WK, IV INFUSION ON DAY 1 OF EACH CYCLE OF DA-EPOCH-R
     Route: 042
     Dates: start: 20220209
  2. NIVOLUMAB [Suspect]
     Active Substance: NIVOLUMAB
     Dosage: AFTER COMPLETION OF 6 CYCLES OF DA-R-EPOCH, 480 MILLIGRAM EVERY 28 DAYS X 6 CYCLES WAS STARTED
     Route: 042
     Dates: end: 20220209
  3. PREDNISONE [Suspect]
     Active Substance: PREDNISONE
     Indication: Diffuse large B-cell lymphoma
     Dosage: 60 MG/M2/DAILY ON DAYS 1-5 EACH 21 DAY CYCLE
     Route: 048
     Dates: start: 20211115
  4. RITUXIMAB [Suspect]
     Active Substance: RITUXIMAB
     Indication: Diffuse large B-cell lymphoma
     Dosage: 375 MILLIGRAM/SQ. METER, Q3WK
     Route: 042
     Dates: start: 20211115, end: 20220209
  5. DOXORUBICIN [Suspect]
     Active Substance: DOXORUBICIN
     Indication: Diffuse large B-cell lymphoma
     Dosage: 10 MILLIGRAM/SQ. METER, QD
     Route: 065
     Dates: start: 20211115
  6. ETOPOSIDE [Suspect]
     Active Substance: ETOPOSIDE
     Indication: Diffuse large B-cell lymphoma
     Dosage: 50 MILLIGRAM/SQ. METER, QD
     Route: 065
     Dates: start: 20211115
  7. VINCRISTINE SULFATE [Suspect]
     Active Substance: VINCRISTINE SULFATE
     Indication: Diffuse large B-cell lymphoma
     Dosage: 04 MG/M2/DAY, IV INFUSION X 96 HOURS EACH 21 DAY CYCLE
     Route: 042
     Dates: start: 20211115
  8. CYCLOPHOSPHAMIDE [Suspect]
     Active Substance: CYCLOPHOSPHAMIDE
     Indication: Diffuse large B-cell lymphoma
     Dosage: 750 MG/M2/DAY FOLLOWING 96 HOURS INFUSION EACH 21 DAY CYCLE
     Route: 042
     Dates: start: 20211115, end: 20220213

REACTIONS (2)
  - Febrile neutropenia [Unknown]
  - Mucosal inflammation [Unknown]

NARRATIVE: CASE EVENT DATE: 20220220
